FAERS Safety Report 4998771-9 (Version None)
Quarter: 2006Q2

REPORT INFORMATION
  Report Type: 
  Country: None (occurrence: None)
  Receive Date: 20060509
  Receipt Date: 20060425
  Transmission Date: 20061013
  Serious: Yes (Hospitalization, Other)
  Sender: FDA-Public Use
  Company Number: 2006S1002651

PATIENT
  Age: 49 Year
  Sex: Male
  Weight: 96.1626 kg

DRUGS (13)
  1. CLOZAPINE [Suspect]
     Indication: SCHIZOPHRENIA
     Dosage: SEE IMAGE
     Route: 048
     Dates: start: 20030901, end: 20060323
  2. CLOZAPINE [Suspect]
     Indication: SCHIZOPHRENIA
     Dosage: SEE IMAGE
     Route: 048
     Dates: start: 20030901, end: 20060323
  3. FLUOXETINE [Concomitant]
  4. HYDROCHLORIDE [Concomitant]
  5. ARIPIPRAZOLE [Concomitant]
  6. DESMOPRESSIN [Concomitant]
  7. OMEPRAZOLE [Concomitant]
  8. DILTIAZEM [Concomitant]
  9. FUROSEMIDE [Concomitant]
  10. POTASSIUM [Concomitant]
  11. HYDROCHLOROTHIAZIDE [Concomitant]
  12. SIMVASTATIN [Concomitant]
  13. QUINAPRIL HCL [Concomitant]

REACTIONS (3)
  - CEREBROVASCULAR ACCIDENT [None]
  - DYSPNOEA [None]
  - NEUTROPHIL COUNT DECREASED [None]
